FAERS Safety Report 5737698-1 (Version None)
Quarter: 2008Q2

REPORT INFORMATION
  Report Type: 
  Country: None (occurrence: None)
  Receive Date: 20080512
  Receipt Date: 20080512
  Transmission Date: 20081010
  Serious: Yes (Other)
  Sender: FDA-Public Use
  Company Number: None

PATIENT
  Age: 74 Year
  Sex: Female

DRUGS (1)
  1. DIGITEK  0.125MG  AMIDE-BERTEK- [Suspect]
     Dosage: 0.125MG DAILY PO
     Route: 048
     Dates: start: 20080219, end: 20080507

REACTIONS (3)
  - HEART RATE IRREGULAR [None]
  - LABILE BLOOD PRESSURE [None]
  - NAUSEA [None]
